FAERS Safety Report 20221236 (Version 2)
Quarter: 2022Q1

REPORT INFORMATION
  Report Type: Other
  Country: US (occurrence: US)
  Receive Date: 20211223
  Receipt Date: 20220119
  Transmission Date: 20220424
  Serious: No
  Sender: FDA-Public Use
  Company Number: US-NEUROCRINE BIOSCIENCES INC.-2021NBI07286

PATIENT

DRUGS (3)
  1. INGREZZA [Suspect]
     Active Substance: VALBENAZINE
     Indication: Extrapyramidal disorder
     Dosage: 80 MILLIGRAM, QD
     Route: 048
     Dates: start: 20200219
  2. INGREZZA [Suspect]
     Active Substance: VALBENAZINE
     Indication: Movement disorder
  3. INGREZZA [Suspect]
     Active Substance: VALBENAZINE
     Indication: Tardive dyskinesia

REACTIONS (3)
  - Parkinsonism [Unknown]
  - Libido decreased [Unknown]
  - Off label use [Unknown]
